FAERS Safety Report 4377539-0 (Version None)
Quarter: 2004Q2

REPORT INFORMATION
  Report Type: 
  Country: None (occurrence: None)
  Receive Date: 20040609
  Receipt Date: 20040426
  Transmission Date: 20050107
  Serious: No
  Sender: FDA-Public Use
  Company Number: PHEH2004US03608

PATIENT
  Age: 29 Year
  Sex: Female
  Weight: 57.1 kg

DRUGS (1)
  1. GLEEVEC [Suspect]
     Indication: SMALL CELL CARCINOMA OF THE CERVIX
     Dosage: 800 MG, QD
     Dates: start: 20040112, end: 20040317

REACTIONS (2)
  - DYSPNOEA [None]
  - WHEEZING [None]
